FAERS Safety Report 9064701 (Version 1)
Quarter: 2013Q1

REPORT INFORMATION
  Report Type: Report from Study
  Country: US (occurrence: US)
  Receive Date: 20130131
  Receipt Date: 20130131
  Transmission Date: 20140127
  Serious: Yes (Other)
  Sender: FDA-Public Use
  Company Number: US-ABBOTT-12P-163-1015485-00

PATIENT
  Age: 53 Year
  Sex: Female

DRUGS (4)
  1. HUMIRA [Suspect]
     Indication: RHEUMATOID ARTHRITIS
     Dates: start: 200701
  2. HUMIRA [Suspect]
     Dates: start: 2010
  3. WELCHOL [Concomitant]
     Indication: BLOOD CHOLESTEROL INCREASED
     Dosage: 5 MG DAILY
  4. TRAMADOL [Concomitant]
     Indication: ARTHRALGIA

REACTIONS (2)
  - Cholecystectomy [Unknown]
  - Alopecia [Unknown]
